FAERS Safety Report 24551313 (Version 2)
Quarter: 2024Q4

REPORT INFORMATION
  Report Type: Report from Study
  Country: US (occurrence: US)
  Receive Date: 20241025
  Receipt Date: 20241107
  Transmission Date: 20250115
  Serious: Yes (Hospitalization)
  Sender: ABBVIE
  Company Number: US-ABBVIE-5974959

PATIENT
  Age: 42 Year
  Sex: Female
  Weight: 79 kg

DRUGS (1)
  1. HUMIRA [Suspect]
     Active Substance: ADALIMUMAB
     Indication: Crohn^s disease
     Dosage: FORM STRENGTH:40 MILLIGRAM
     Route: 058
     Dates: start: 2023

REACTIONS (2)
  - Psychotic disorder [Unknown]
  - Bipolar disorder [Recovering/Resolving]

NARRATIVE: CASE EVENT DATE: 20240801
